FAERS Safety Report 8836344 (Version 2)
Quarter: 2012Q4

REPORT INFORMATION
  Report Type: 
  Country: DE (occurrence: DE)
  Receive Date: 20121011
  Receipt Date: 20121023
  Transmission Date: 20130627
  Serious: Yes (Other)
  Sender: FDA-Public Use
  Company Number: DE-FRI-1000039291

PATIENT
  Sex: Male

DRUGS (2)
  1. NEBIVOLOL [Suspect]
     Indication: HYPERTENSION
     Dosage: 5 mg
     Route: 064
  2. CO-DIOVAN [Suspect]
     Indication: HYPERTENSION
     Dosage: 80 mg/12.5 mg daily
     Route: 064

REACTIONS (3)
  - Renal failure [Not Recovered/Not Resolved]
  - Renal hypertension [Not Recovered/Not Resolved]
  - Anaemia [Unknown]
